FAERS Safety Report 22151692 (Version 1)
Quarter: 2023Q1

REPORT INFORMATION
  Report Type: Spontaneous
  Country: GB (occurrence: GB)
  Receive Date: 20230329
  Receipt Date: 20230329
  Transmission Date: 20230418
  Serious: Yes (Other)
  Sender: FDA-Public Use
  Company Number: GB-MHRA-MED-202303231720523970-TNSZH

PATIENT
  Sex: Female

DRUGS (1)
  1. FAMOTIDINE [Suspect]
     Active Substance: FAMOTIDINE
     Indication: Post-acute COVID-19 syndrome
     Dosage: 20 MILLIGRAM, BID
     Route: 065

REACTIONS (1)
  - Syncope [Recovered/Resolved]
